FAERS Safety Report 10366719 (Version 1)
Quarter: 2014Q3

REPORT INFORMATION
  Report Type: Spontaneous
  Country: SG (occurrence: SG)
  Receive Date: 20140806
  Receipt Date: 20140806
  Transmission Date: 20150326
  Serious: Yes (Other)
  Sender: FDA-Public Use
  Company Number: SG-009507513-1408SGP000986

PATIENT
  Age: 56 Year
  Sex: Female

DRUGS (4)
  1. TEMOZOLOMIDE [Suspect]
     Active Substance: TEMOZOLOMIDE
     Dosage: 150 MG/M2/DAY FOR 5 DAYS EVERY MONTH FOR A TOTAL OF 8 CYCLES
     Route: 048
     Dates: start: 20080520, end: 20081226
  2. DEXAMETHASONE. [Concomitant]
     Active Substance: DEXAMETHASONE
     Dosage: TAMPERING DOSE
     Route: 048
     Dates: end: 2008
  3. TEMOZOLOMIDE [Suspect]
     Active Substance: TEMOZOLOMIDE
     Indication: GLIOBLASTOMA MULTIFORME
     Dosage: UNK
     Route: 048
     Dates: end: 200901
  4. TEMOZOLOMIDE [Suspect]
     Active Substance: TEMOZOLOMIDE
     Dosage: 75 MG/M2/DAY
     Route: 048
     Dates: start: 20080227, end: 20080409

REACTIONS (4)
  - Haematotoxicity [Unknown]
  - Platelet transfusion [Unknown]
  - Acute myeloid leukaemia [Unknown]
  - Transfusion [Unknown]

NARRATIVE: CASE EVENT DATE: 2009
